FAERS Safety Report 6712260-2 (Version None)
Quarter: 2010Q2

REPORT INFORMATION
  Report Type: 
  Country: None (occurrence: None)
  Receive Date: 20100505
  Receipt Date: 20100422
  Transmission Date: 20101027
  Serious: No
  Sender: FDA-Public Use
  Company Number: US-ELI_LILLY_AND_COMPANY-US201004008228

PATIENT
  Age: 82 Year
  Sex: Female

DRUGS (4)
  1. CYMBALTA [Suspect]
     Indication: NEUROPATHY PERIPHERAL
     Dosage: 30 MG, UNK
  2. CYMBALTA [Suspect]
     Dosage: 60 MG, UNK
     Dates: end: 20100421
  3. HORMONES NOS [Concomitant]
  4. THYROID THERAPY [Concomitant]
     Indication: THYROID DISORDER

REACTIONS (3)
  - ALANINE AMINOTRANSFERASE INCREASED [None]
  - ASPARTATE AMINOTRANSFERASE INCREASED [None]
  - OFF LABEL USE [None]
